FAERS Safety Report 9762925 (Version 1)
Quarter: 2013Q4

REPORT INFORMATION
  Report Type: Spontaneous
  Country: US (occurrence: US)
  Receive Date: 20131216
  Receipt Date: 20131216
  Transmission Date: 20140711
  Serious: No
  Sender: FDA-Public Use
  Company Number: US-BIOGENIDEC-2013BI102617

PATIENT
  Sex: Male
  Weight: 70 kg

DRUGS (7)
  1. TECFIDERA [Suspect]
     Indication: PRODUCT USED FOR UNKNOWN INDICATION
     Route: 048
  2. TECFIDERA [Suspect]
     Indication: PRODUCT USED FOR UNKNOWN INDICATION
     Route: 048
  3. OMEPRAZOLE [Concomitant]
  4. IBUPROFEN [Concomitant]
  5. CINNAMON [Concomitant]
  6. BUPROPION ER [Concomitant]
  7. CHROMIUM FORTE [Concomitant]

REACTIONS (7)
  - Palpitations [Unknown]
  - Hyperventilation [Unknown]
  - General symptom [Unknown]
  - Dizziness [Unknown]
  - Hyperhidrosis [Unknown]
  - Flushing [Unknown]
  - Feeling hot [Unknown]
